FAERS Safety Report 13229360 (Version 1)
Quarter: 2017Q1

REPORT INFORMATION
  Report Type: Report from Study
  Country: None (occurrence: US)
  Receive Date: 20170214
  Receipt Date: 20170214
  Transmission Date: 20170428
  Serious: Yes (Hospitalization)
  Sender: FDA-Public Use
  Company Number: US-ABBVIE-17K-163-1864120-00

PATIENT
  Age: 71 Year
  Sex: Male

DRUGS (1)
  1. HUMIRA [Suspect]
     Active Substance: ADALIMUMAB
     Indication: PSORIASIS
     Route: 058
     Dates: start: 2016, end: 201611

REACTIONS (3)
  - Bipolar disorder [Recovering/Resolving]
  - Psoriasis [Not Recovered/Not Resolved]
  - Substance abuse [Recovering/Resolving]

NARRATIVE: CASE EVENT DATE: 201612
